FAERS Safety Report 8777500 (Version 1)
Quarter: 2012Q4

REPORT INFORMATION
  Report Type: 
  Country: US (occurrence: US)
  Receive Date: 20120911
  Receipt Date: 20120911
  Transmission Date: 20130627
  Serious: Yes (Hospitalization, Other)
  Sender: FDA-Public Use
  Company Number: US-JNJFOC-20120902448

PATIENT

DRUGS (1)
  1. GALANTAMINE HBR [Suspect]
     Indication: DEMENTIA
     Route: 065

REACTIONS (5)
  - Hyperhidrosis [Unknown]
  - Abdominal discomfort [Unknown]
  - Sedation [Unknown]
  - Drooling [Unknown]
  - Accidental exposure to product [Unknown]
